FAERS Safety Report 13301071 (Version 2)
Quarter: 2017Q1

REPORT INFORMATION
  Report Type: Spontaneous
  Country: US (occurrence: US)
  Receive Date: 20170307
  Receipt Date: 20170309
  Transmission Date: 20170428
  Serious: No
  Sender: FDA-Public Use
  Company Number: US-BAYER-2017-043641

PATIENT
  Age: 73 Year
  Sex: Female
  Weight: 65.08 kg

DRUGS (2)
  1. MIRALAX [Suspect]
     Active Substance: POLYETHYLENE GLYCOL 3350
     Indication: GASTROINTESTINAL DISORDER
     Dosage: UNK
     Route: 048
     Dates: end: 20170305
  2. PSYLLIUM HUSK [Concomitant]
     Active Substance: PSYLLIUM HUSK
     Dosage: UNK

REACTIONS (5)
  - Expired product administered [Unknown]
  - Off label use [Unknown]
  - Malaise [Unknown]
  - Drug ineffective [Unknown]
  - Vomiting [Unknown]
